FAERS Safety Report 7551408-7 (Version None)
Quarter: 2011Q2

REPORT INFORMATION
  Report Type: 
  Country: None (occurrence: None)
  Receive Date: 20110616
  Receipt Date: 20110601
  Transmission Date: 20111010
  Serious: Yes (Hospitalization)
  Sender: FDA-Public Use
  Company Number: JP-JNJFOC-20110602089

PATIENT
  Age: 72 Year
  Sex: Female

DRUGS (5)
  1. ETHANOL [Suspect]
     Indication: HEPATIC NEOPLASM MALIGNANT
  2. REMICADE [Suspect]
     Indication: RHEUMATOID ARTHRITIS
     Route: 042
  3. PREDNISOLONE [Suspect]
     Indication: RHEUMATOID ARTHRITIS
  4. TACROLIMUS [Suspect]
     Indication: RHEUMATOID ARTHRITIS
  5. METHOTREXATE [Suspect]
     Indication: RHEUMATOID ARTHRITIS

REACTIONS (2)
  - HEPATIC NEOPLASM MALIGNANT [None]
  - PYREXIA [None]
